FAERS Safety Report 23196950 (Version 2)
Quarter: 2024Q1

REPORT INFORMATION
  Report Type: Spontaneous
  Country: US (occurrence: None)
  Receive Date: 20231117
  Receipt Date: 20240105
  Transmission Date: 20240410
  Serious: No
  Sender: FDA-Public Use
  Company Number: 2023A256880

PATIENT

DRUGS (1)
  1. SYMBICORT [Suspect]
     Active Substance: BUDESONIDE\FORMOTEROL FUMARATE DIHYDRATE
     Dosage: 160UG/4.5UG IN UNKNOWN DOSAGE AND UNKNOWN FREQUENCY UNKNOWN
     Route: 055

REACTIONS (3)
  - Dyspnoea [Unknown]
  - Product dose omission in error [Unknown]
  - Device delivery system issue [Unknown]
